FAERS Safety Report 10129517 (Version 1)
Quarter: 2014Q2

REPORT INFORMATION
  Report Type: Spontaneous
  Country: US (occurrence: None)
  Receive Date: 20140425
  Receipt Date: 20140425
  Transmission Date: 20141212
  Serious: Yes (Hospitalization)
  Sender: FDA-Public Use
  Company Number: None

PATIENT
  Age: 82 Year
  Sex: Male
  Weight: 75 kg

DRUGS (14)
  1. NAFCILLIN [Suspect]
     Indication: STAPHYLOCOCCAL BACTERAEMIA
     Dosage: 2 GRAMS, Q4 HOURS, INTRAVENOUS
     Route: 042
     Dates: start: 20140327, end: 20140402
  2. CLOPIDOGREL 75MG [Concomitant]
  3. LISINOPRIL 5MG [Concomitant]
  4. DEXTROAMPHETAMINE [Concomitant]
  5. FLUOXETINE [Concomitant]
  6. MULTIVITAMINS [Concomitant]
  7. ACETAMINOPHEN [Concomitant]
  8. BISACODYL [Concomitant]
  9. DOCUSATE SODIUM [Concomitant]
  10. LIDOCAINE 5% [Concomitant]
  11. OXYCODONE [Concomitant]
  12. WARFARIN 3MG CADILA HEALTHCARE [Concomitant]
  13. ATORVASTATIN [Concomitant]
  14. METPROLOL TARTRATE 12.5MG [Concomitant]

REACTIONS (1)
  - Acute interstitial pneumonitis [None]
